FAERS Safety Report 17508176 (Version 1)
Quarter: 2020Q1

REPORT INFORMATION
  Report Type: Report from Study
  Country: IT (occurrence: IT)
  Receive Date: 20200306
  Receipt Date: 20200306
  Transmission Date: 20200409
  Serious: Yes (Death, Other)
  Sender: FDA-Public Use
  Company Number: IT-ACCORD-175147

PATIENT

DRUGS (7)
  1. RANITIDINE. [Concomitant]
     Active Substance: RANITIDINE
     Indication: PREMEDICATION
     Dosage: ADMINISTERED IV OVER 30 MINUTES ON DAYS?1 TO 5
  2. CISPLATIN. [Suspect]
     Active Substance: CISPLATIN
     Indication: GERM CELL CANCER
     Dosage: OVER 3 HOURS ON DAYS 1 TO 5
     Route: 042
  3. BLEOMYCIN [Suspect]
     Active Substance: BLEOMYCIN SULFATE
     Indication: GERM CELL CANCER
     Dosage: IV PUSH ON DAY 1 AND 10 MG IV C.I. OVER 12 HOURS ON DAYS 1 TO 3
     Route: 042
  4. GRANISETRON [Concomitant]
     Active Substance: GRANISETRON
     Indication: PREMEDICATION
  5. DEXAMETHASONE. [Concomitant]
     Active Substance: DEXAMETHASONE
     Indication: PREMEDICATION
  6. ETOPOSIDE. [Suspect]
     Active Substance: ETOPOSIDE
     Indication: GERM CELL CANCER
     Dosage: OVER 60 MINUTES IV ON DAYS 1 TO 5
  7. SODIUM CHLORIDE. [Concomitant]
     Active Substance: SODIUM CHLORIDE
     Dosage: IV OVER 24 HOURS ON DAYS 1 TO 5

REACTIONS (2)
  - Alopecia [Unknown]
  - Cerebrovascular accident [Fatal]
